FAERS Safety Report 12998035 (Version 5)
Quarter: 2021Q1

REPORT INFORMATION
  Report Type: Other
  Country: CA (occurrence: CA)
  Receive Date: 20161205
  Receipt Date: 20210323
  Transmission Date: 20210419
  Serious: Yes (Life-Threatening, Hospitalization, Other)
  Sender: FDA-Public Use
  Company Number: CA-NAPPMUNDI-CAN-2016-0007237

PATIENT
  Age: 52 Year
  Sex: Male

DRUGS (85)
  1. OXYCODONE HYDROCHLORIDE. [Interacting]
     Active Substance: OXYCODONE HYDROCHLORIDE
     Indication: SPINAL STENOSIS
     Dosage: 20 MG, UNK
     Route: 048
  2. OXYCODONE HYDROCHLORIDE. [Interacting]
     Active Substance: OXYCODONE HYDROCHLORIDE
     Dosage: UNK
     Route: 048
  3. OXYCODONE HYDROCHLORIDE. [Interacting]
     Active Substance: OXYCODONE HYDROCHLORIDE
     Dosage: UNK
     Route: 065
  4. OXYCODONE HYDROCHLORIDE. [Interacting]
     Active Substance: OXYCODONE HYDROCHLORIDE
     Dosage: UNK
     Route: 065
  5. OXYCODONE HYDROCHLORIDE. [Interacting]
     Active Substance: OXYCODONE HYDROCHLORIDE
     Dosage: UNK
     Route: 048
  6. MORPHINE SULFATE. [Interacting]
     Active Substance: MORPHINE SULFATE
     Dosage: 30 MG, UNK
     Route: 048
  7. MORPHINE SULFATE. [Interacting]
     Active Substance: MORPHINE SULFATE
     Dosage: UNK
     Route: 048
  8. MORPHINE SULFATE. [Interacting]
     Active Substance: MORPHINE SULFATE
     Dosage: 100 MG, UNK
     Route: 065
  9. ZOPICLONE [Interacting]
     Active Substance: ZOPICLONE
     Dosage: 187.5 MG, UNK
  10. ZOPICLONE [Interacting]
     Active Substance: ZOPICLONE
     Dosage: 15 MG, DAILY
     Route: 048
  11. ZOPICLONE [Interacting]
     Active Substance: ZOPICLONE
     Dosage: UNK
     Route: 048
  12. OXYCODONE HYDROCHLORIDE. [Interacting]
     Active Substance: OXYCODONE HYDROCHLORIDE
     Dosage: 20 MG, UNK
     Route: 048
  13. MORPHINE SULFATE. [Interacting]
     Active Substance: MORPHINE SULFATE
     Dosage: 30 MG, UNK
     Route: 048
  14. MORPHINE SULFATE. [Interacting]
     Active Substance: MORPHINE SULFATE
     Dosage: 9500 MG, UNK
     Route: 065
  15. MORPHINE SULFATE. [Interacting]
     Active Substance: MORPHINE SULFATE
     Dosage: 420 MG, UNK
     Route: 065
  16. MORPHINE SULFATE. [Interacting]
     Active Substance: MORPHINE SULFATE
     Dosage: 30 MG, DAILY
     Route: 048
  17. OXYCODONE AND ACETAMINOPHEN [Interacting]
     Active Substance: ACETAMINOPHEN\OXYCODONE HYDROCHLORIDE
     Indication: PRODUCT USED FOR UNKNOWN INDICATION
     Dosage: UNK
     Route: 048
  18. CIPRALEX [Interacting]
     Active Substance: ESCITALOPRAM OXALATE
     Dosage: 140 MG, UNK
     Route: 048
  19. OXYCODONE AND ACETAMINOPHEN [Interacting]
     Active Substance: ACETAMINOPHEN\OXYCODONE HYDROCHLORIDE
     Indication: PRODUCT USED FOR UNKNOWN INDICATION
     Dosage: UNK
     Route: 048
  20. CITALOPRAM HYDROBROMIDE. [Interacting]
     Active Substance: CITALOPRAM HYDROBROMIDE
     Indication: PRODUCT USED FOR UNKNOWN INDICATION
     Dosage: UNK
     Route: 048
  21. OXYCODONE HYDROCHLORIDE. [Interacting]
     Active Substance: OXYCODONE HYDROCHLORIDE
     Dosage: 20 MG, UNK
     Route: 048
  22. MORPHINE SULFATE. [Interacting]
     Active Substance: MORPHINE SULFATE
     Dosage: 100 MG, UNK
     Route: 065
  23. MORPHINE SULFATE. [Interacting]
     Active Substance: MORPHINE SULFATE
     Dosage: 30 MG, DAILY
     Route: 048
  24. MORPHINE SULFATE. [Interacting]
     Active Substance: MORPHINE SULFATE
     Dosage: 15 MG, UNK
     Route: 065
  25. MORPHINE SULFATE. [Interacting]
     Active Substance: MORPHINE SULFATE
     Dosage: UNK
     Route: 048
  26. MORPHINE SULFATE. [Interacting]
     Active Substance: MORPHINE SULFATE
     Dosage: 30 MG, DAILY
     Route: 048
  27. CIPRALEX [Interacting]
     Active Substance: ESCITALOPRAM OXALATE
     Dosage: 10 MG, DAILY
     Route: 065
  28. DIAZEPAM. [Interacting]
     Active Substance: DIAZEPAM
     Dosage: 1800 MG, UNK
  29. ZOPICLONE [Interacting]
     Active Substance: ZOPICLONE
     Dosage: 7.5 MG, UNK
     Route: 065
  30. OXYCODONE HYDROCHLORIDE. [Interacting]
     Active Substance: OXYCODONE HYDROCHLORIDE
     Dosage: 10 MG, UNK
     Route: 065
  31. OXYCODONE HYDROCHLORIDE. [Interacting]
     Active Substance: OXYCODONE HYDROCHLORIDE
     Dosage: 20 MG, UNK
     Route: 048
  32. OXYCODONE HYDROCHLORIDE. [Interacting]
     Active Substance: OXYCODONE HYDROCHLORIDE
     Dosage: UNK
     Route: 048
  33. OXYCODONE HYDROCHLORIDE. [Interacting]
     Active Substance: OXYCODONE HYDROCHLORIDE
     Dosage: 10 MG, UNK
     Route: 065
  34. MORPHINE SULFATE. [Interacting]
     Active Substance: MORPHINE SULFATE
     Dosage: 15 MG, UNK
     Route: 065
  35. MORPHINE SULFATE. [Interacting]
     Active Substance: MORPHINE SULFATE
     Dosage: 100 MG, UNK
     Route: 065
  36. DIAZEPAM. [Interacting]
     Active Substance: DIAZEPAM
     Dosage: 1800 MG, UNK
  37. DIAZEPAM. [Interacting]
     Active Substance: DIAZEPAM
     Dosage: UNK
     Route: 048
  38. ALTACE [Suspect]
     Active Substance: RAMIPRIL
     Indication: PRODUCT USED FOR UNKNOWN INDICATION
     Dosage: UNK
     Route: 065
  39. CIPRALEX [Interacting]
     Active Substance: ESCITALOPRAM OXALATE
     Dosage: 140 MG, UNK
     Route: 048
  40. CIPRALEX [Interacting]
     Active Substance: ESCITALOPRAM OXALATE
     Dosage: 10 MG, DAILY
     Route: 065
  41. CIPRALEX [Interacting]
     Active Substance: ESCITALOPRAM OXALATE
     Dosage: 140 MG, UNK
     Route: 048
  42. ESCITALOPRAM [Suspect]
     Active Substance: ESCITALOPRAM OXALATE
     Indication: PRODUCT USED FOR UNKNOWN INDICATION
     Dosage: 10 MG, UNK
     Route: 065
  43. OXYCODONE HYDROCHLORIDE. [Interacting]
     Active Substance: OXYCODONE HYDROCHLORIDE
     Dosage: 10 MG, UNK
     Route: 065
  44. MORPHINE SULFATE. [Interacting]
     Active Substance: MORPHINE SULFATE
     Indication: INSOMNIA
     Dosage: 2640 MG, UNK
     Route: 065
  45. MORPHINE SULFATE. [Interacting]
     Active Substance: MORPHINE SULFATE
     Dosage: UNK
     Route: 048
  46. MORPHINE SULFATE. [Interacting]
     Active Substance: MORPHINE SULFATE
     Dosage: 2640 MG, UNK
     Route: 065
  47. DIAZEPAM. [Interacting]
     Active Substance: DIAZEPAM
     Dosage: 1800 MG, UNK
     Route: 048
  48. DIAZEPAM. [Interacting]
     Active Substance: DIAZEPAM
     Dosage: UNK
     Route: 048
  49. LORAZEPAM. [Interacting]
     Active Substance: LORAZEPAM
     Indication: INSOMNIA
     Dosage: 30 MG, UNK
     Route: 048
  50. ZOPICLONE [Interacting]
     Active Substance: ZOPICLONE
     Dosage: 187.5 MG, UNK
     Route: 048
  51. ZOPICLONE [Interacting]
     Active Substance: ZOPICLONE
     Dosage: 15 MG, DAILY
     Route: 048
  52. CIPRALEX [Interacting]
     Active Substance: ESCITALOPRAM OXALATE
     Indication: DEPRESSION
     Dosage: 10 MG, UNK
     Route: 065
  53. CIPRALEX [Interacting]
     Active Substance: ESCITALOPRAM OXALATE
     Dosage: 10 MG, DAILY
     Route: 065
  54. OXYCODONE HYDROCHLORIDE. [Suspect]
     Active Substance: OXYCODONE HYDROCHLORIDE
     Indication: SPINAL STENOSIS
     Dosage: UNK
     Route: 065
  55. MORPHINE SULFATE. [Interacting]
     Active Substance: MORPHINE SULFATE
     Dosage: 30 MG, DAILY
     Route: 048
  56. MORPHINE SULFATE. [Interacting]
     Active Substance: MORPHINE SULFATE
     Dosage: 15 MG, UNK
     Route: 065
  57. MORPHINE SULFATE. [Interacting]
     Active Substance: MORPHINE SULFATE
     Dosage: 9500 MG, UNK
     Route: 065
  58. MORPHINE SULFATE. [Interacting]
     Active Substance: MORPHINE SULFATE
     Dosage: 30 MG, UNK
     Route: 048
  59. MORPHINE SULFATE. [Interacting]
     Active Substance: MORPHINE SULFATE
     Dosage: UNK
     Route: 048
  60. MORPHINE SULFATE. [Interacting]
     Active Substance: MORPHINE SULFATE
     Dosage: 420 MG, UNK
     Route: 065
  61. MORPHINE SULFATE. [Interacting]
     Active Substance: MORPHINE SULFATE
     Dosage: 15 MG, UNK
     Route: 065
  62. LORAZEPAM. [Interacting]
     Active Substance: LORAZEPAM
     Indication: PRODUCT USED FOR UNKNOWN INDICATION
     Dosage: 10 UNK, UNK
     Route: 048
  63. LORAZEPAM. [Interacting]
     Active Substance: LORAZEPAM
     Dosage: 1 MG, UNK
     Route: 048
  64. ZOPICLONE [Interacting]
     Active Substance: ZOPICLONE
     Indication: INSOMNIA
     Dosage: 7.5 MG, UNK
     Route: 065
  65. ZOPICLONE [Interacting]
     Active Substance: ZOPICLONE
     Dosage: 187.5 MG, UNK
     Route: 048
  66. OXYCODONE HYDROCHLORIDE. [Interacting]
     Active Substance: OXYCODONE HYDROCHLORIDE
     Dosage: UNK
     Route: 065
  67. MORPHINE SULFATE. [Interacting]
     Active Substance: MORPHINE SULFATE
     Dosage: 100 MG, UNK
     Route: 065
  68. MORPHINE SULFATE. [Interacting]
     Active Substance: MORPHINE SULFATE
     Dosage: 2640 MG, UNK
     Route: 065
  69. MORPHINE SULFATE. [Interacting]
     Active Substance: MORPHINE SULFATE
     Dosage: 30 MG, UNK
     Route: 048
  70. CIPRALEX [Interacting]
     Active Substance: ESCITALOPRAM OXALATE
     Indication: DEPRESSION
     Dosage: 10 MG, UNK
     Route: 065
  71. DIAZEPAM. [Interacting]
     Active Substance: DIAZEPAM
     Indication: SPINAL STENOSIS
     Dosage: 10 MG, UNK
     Route: 065
  72. DIAZEPAM. [Interacting]
     Active Substance: DIAZEPAM
     Dosage: UNK
     Route: 048
  73. ZOPICLONE [Interacting]
     Active Substance: ZOPICLONE
     Dosage: 15 MG, DAILY
     Route: 048
  74. ZOPICLONE [Interacting]
     Active Substance: ZOPICLONE
     Dosage: 15 MG, DAILY
     Route: 048
  75. OXYCODONE HYDROCHLORIDE. [Interacting]
     Active Substance: OXYCODONE HYDROCHLORIDE
     Dosage: UNK
     Route: 048
  76. OXYCODONE HYDROCHLORIDE. [Interacting]
     Active Substance: OXYCODONE HYDROCHLORIDE
     Dosage: 10 MG, UNK
     Route: 065
  77. MORPHINE SULFATE. [Interacting]
     Active Substance: MORPHINE SULFATE
     Indication: SPINAL STENOSIS
     Dosage: 9500 MG, UNK
     Route: 065
  78. MORPHINE SULFATE. [Interacting]
     Active Substance: MORPHINE SULFATE
     Indication: SPINAL STENOSIS
     Dosage: 420 MG, UNK
     Route: 065
  79. MORPHINE SULFATE. [Interacting]
     Active Substance: MORPHINE SULFATE
     Dosage: 420 MG, UNK
     Route: 065
  80. MORPHINE SULFATE. [Interacting]
     Active Substance: MORPHINE SULFATE
     Dosage: 2640 MG, UNK
     Route: 065
  81. MORPHINE SULFATE. [Interacting]
     Active Substance: MORPHINE SULFATE
     Dosage: 9500 MG, UNK
     Route: 065
  82. DIAZEPAM. [Interacting]
     Active Substance: DIAZEPAM
     Dosage: UNK
     Route: 048
  83. DIAZEPAM. [Interacting]
     Active Substance: DIAZEPAM
     Dosage: 1800 MG, UNK
  84. LORAZEPAM. [Interacting]
     Active Substance: LORAZEPAM
     Dosage: 1 MG, UNK
  85. ZOPICLONE [Interacting]
     Active Substance: ZOPICLONE
     Dosage: 187.5 MG, UNK

REACTIONS (22)
  - Electrocardiogram abnormal [Recovering/Resolving]
  - Loss of consciousness [Recovering/Resolving]
  - Overdose [Recovering/Resolving]
  - Blood creatine phosphokinase increased [Recovering/Resolving]
  - Blood creatinine increased [Recovering/Resolving]
  - Blood pressure decreased [Recovering/Resolving]
  - Oxygen saturation decreased [Recovering/Resolving]
  - Coma [Recovering/Resolving]
  - Electrocardiogram QT prolonged [Recovering/Resolving]
  - Drug interaction [Recovering/Resolving]
  - Coma scale abnormal [Recovering/Resolving]
  - Opiates positive [Recovering/Resolving]
  - Blood potassium increased [Recovering/Resolving]
  - Hyperkalaemia [Recovering/Resolving]
  - Hypotension [Recovering/Resolving]
  - Drug screen positive [Recovering/Resolving]
  - Intentional overdose [Recovering/Resolving]
  - Sinus tachycardia [Recovering/Resolving]
  - Bradycardia [Recovering/Resolving]
  - Heart rate decreased [Recovering/Resolving]
  - Mechanical ventilation [Recovering/Resolving]
  - Suicide attempt [Recovering/Resolving]
